FAERS Safety Report 22087341 (Version 2)
Quarter: 2024Q1

REPORT INFORMATION
  Report Type: Other
  Country: US (occurrence: None)
  Receive Date: 20230313
  Receipt Date: 20240228
  Transmission Date: 20240410
  Serious: Yes (Hospitalization)
  Sender: FDA-Public Use
  Company Number: US-ROCHE-3150024

PATIENT
  Sex: Male

DRUGS (2)
  1. CELLCEPT [Suspect]
     Active Substance: MYCOPHENOLATE MOFETIL
     Indication: Myasthenia gravis
     Dosage: 2 IN THE AM AND 3 IN THE PM
     Route: 065
  2. CELLCEPT [Suspect]
     Active Substance: MYCOPHENOLATE MOFETIL
     Dosage: 2 TABS 2 TIMES DAILY
     Route: 065

REACTIONS (3)
  - Gastroenteritis salmonella [Unknown]
  - Manufacturing product shipping issue [Unknown]
  - Off label use [Unknown]
